FAERS Safety Report 20543856 (Version 5)
Quarter: 2022Q2

REPORT INFORMATION
  Report Type: Spontaneous
  Country: IT (occurrence: IT)
  Receive Date: 20220303
  Receipt Date: 20220602
  Transmission Date: 20220721
  Serious: Yes (Hospitalization)
  Sender: FDA-Public Use
  Company Number: IT-SUN PHARMACEUTICAL INDUSTRIES LTD-2022RR-328540

PATIENT
  Age: 18 Year
  Sex: Female

DRUGS (11)
  1. OLANZAPINE [Suspect]
     Active Substance: OLANZAPINE
     Indication: Product used for unknown indication
     Dosage: 35 MILLIGRAM, IN TOTAL, TABLET
     Route: 048
     Dates: start: 20211218, end: 20211218
  2. OLANZAPINE [Suspect]
     Active Substance: OLANZAPINE
     Indication: Drug abuse
  3. ZOLOFT [Suspect]
     Active Substance: SERTRALINE HYDROCHLORIDE
     Indication: Product used for unknown indication
     Dosage: 6 DOSAGE FORM, IN TOTAL
     Route: 048
     Dates: start: 20211218, end: 20211218
  4. ZOLOFT [Suspect]
     Active Substance: SERTRALINE HYDROCHLORIDE
     Indication: Drug abuse
  5. LITHIUM [Suspect]
     Active Substance: LITHIUM
     Indication: Product used for unknown indication
     Dosage: 830 MILLIGRAM, IN TOTAL
     Route: 048
     Dates: start: 20211218, end: 20211218
  6. LITHIUM [Suspect]
     Active Substance: LITHIUM
     Indication: Drug abuse
  7. TAVOR (LORAZEPAM) [Suspect]
     Active Substance: LORAZEPAM
     Indication: Product used for unknown indication
     Dosage: 20 MILLIGRAM, IN TOTAL
     Route: 048
     Dates: start: 20211218, end: 20211218
  8. TAVOR (LORAZEPAM) [Suspect]
     Active Substance: LORAZEPAM
     Indication: Drug abuse
  9. SERTRALINE [Concomitant]
     Active Substance: SERTRALINE HYDROCHLORIDE
     Indication: Product used for unknown indication
     Dosage: 150 MILLIGRAM, UNK
     Route: 065
  10. OLANZAPINE [Concomitant]
     Active Substance: OLANZAPINE
     Indication: Product used for unknown indication
     Dosage: UNK
     Route: 065
  11. LITHIUM SULFATE [Concomitant]
     Active Substance: LITHIUM SULFATE
     Indication: Product used for unknown indication
     Dosage: UNK
     Route: 065

REACTIONS (4)
  - Diarrhoea [Not Recovered/Not Resolved]
  - Sopor [Not Recovered/Not Resolved]
  - Vomiting [Not Recovered/Not Resolved]
  - Drug abuse [Not Recovered/Not Resolved]

NARRATIVE: CASE EVENT DATE: 20211218
